FAERS Safety Report 24024341 (Version 1)
Quarter: 2024Q2

REPORT INFORMATION
  Report Type: Spontaneous
  Country: US (occurrence: US)
  Receive Date: 20240627
  Receipt Date: 20240627
  Transmission Date: 20240716
  Serious: No
  Sender: FDA-Public Use
  Company Number: US-ABBVIE-5817234

PATIENT

DRUGS (2)
  1. LINACLOTIDE [Suspect]
     Active Substance: LINACLOTIDE
     Indication: Inflammatory bowel disease
     Dosage: LAST ADMIN DATE 2024
     Route: 048
     Dates: start: 202404
  2. LINACLOTIDE [Suspect]
     Active Substance: LINACLOTIDE
     Indication: Inflammatory bowel disease
     Dosage: STRENGTH 145 MG
     Route: 048
     Dates: start: 202405

REACTIONS (2)
  - Diarrhoea [Recovering/Resolving]
  - Therapeutic product effect incomplete [Unknown]

NARRATIVE: CASE EVENT DATE: 20240101
